FAERS Safety Report 8270264-5 (Version None)
Quarter: 2012Q2

REPORT INFORMATION
  Report Type: 
  Country: None (occurrence: None)
  Receive Date: 20120410
  Receipt Date: 20120404
  Transmission Date: 20120825
  Serious: No
  Sender: FDA-Public Use
  Company Number: US-PFIZER INC-2012085503

PATIENT
  Sex: Male
  Weight: 72.562 kg

DRUGS (4)
  1. WELLBUTRIN [Concomitant]
     Dosage: 150 MG, DAILY
  2. AMLODIPINE BESYLATE [Suspect]
     Dosage: UNK
  3. BENAZEPRIL HYDROCHLORIDE [Suspect]
     Dosage: UNK
  4. SYNTHROID [Concomitant]
     Indication: THYROID DISORDER
     Dosage: 112 UG, DAILY

REACTIONS (1)
  - PALPITATIONS [None]
